FAERS Safety Report 6831971-1 (Version None)
Quarter: 2010Q3

REPORT INFORMATION
  Report Type: 
  Country: None (occurrence: None)
  Receive Date: 20100712
  Receipt Date: 20100323
  Transmission Date: 20110219
  Serious: No
  Sender: FDA-Public Use
  Company Number: US-TYCO HEALTHCARE/MALLINCKRODT-T201000937

PATIENT

DRUGS (1)
  1. OXYCODONE HCL AND ACETAMINOPHEN [Suspect]
     Indication: PAIN
     Dosage: 1 TABLET, AT BEDTIME
     Dates: start: 20100318, end: 20100404

REACTIONS (4)
  - DIZZINESS [None]
  - DRUG INEFFECTIVE [None]
  - HANGOVER [None]
  - PRODUCT SUBSTITUTION ISSUE [None]
